FAERS Safety Report 5639172-X (Version None)
Quarter: 2008Q1

REPORT INFORMATION
  Report Type: 
  Country: None (occurrence: None)
  Receive Date: 20080226
  Receipt Date: 20080221
  Transmission Date: 20080703
  Serious: Yes (Other)
  Sender: FDA-Public Use
  Company Number: US-ALLERGAN-0800437US

PATIENT
  Sex: Male
  Weight: 111.11 kg

DRUGS (1)
  1. REFRESH CELLUVISC SOLUTION [Suspect]
     Indication: DRY EYE
     Dosage: 2 GTT, TID
     Route: 047
     Dates: start: 20070708, end: 20070711

REACTIONS (5)
  - EYE IRRITATION [None]
  - HYPOAESTHESIA EYE [None]
  - PERIORBITAL CELLULITIS [None]
  - RASH [None]
  - VISION BLURRED [None]
